FAERS Safety Report 6795518-0 (Version None)
Quarter: 2010Q2

REPORT INFORMATION
  Report Type: 
  Country: None (occurrence: None)
  Receive Date: 20100625
  Receipt Date: 20100617
  Transmission Date: 20101027
  Serious: Yes (Other)
  Sender: FDA-Public Use
  Company Number: PL-AMGEN-QUU419748

PATIENT
  Age: 17 Year
  Sex: Female
  Weight: 60 kg

DRUGS (3)
  1. CINACALCET HYDROCHLORIDE [Suspect]
     Indication: HYPERPARATHYROIDISM PRIMARY
     Route: 048
     Dates: start: 20090929, end: 20100104
  2. FUROSEMID [Concomitant]
     Route: 048
     Dates: start: 20090928, end: 20100104
  3. SOMATULINE [Concomitant]
     Route: 030
     Dates: start: 20091008, end: 20091225

REACTIONS (1)
  - ABORTION SPONTANEOUS [None]
